FAERS Safety Report 8305629-6 (Version None)
Quarter: 2012Q2

REPORT INFORMATION
  Report Type: 
  Country: None (occurrence: None)
  Receive Date: 20120423
  Receipt Date: 20120413
  Transmission Date: 20120825
  Serious: Yes (Hospitalization)
  Sender: FDA-Public Use
  Company Number: US-ABBOTT-12P-163-0925938-00

PATIENT
  Age: 70 Year
  Sex: Female

DRUGS (4)
  1. HUMIRA [Suspect]
     Indication: PSORIATIC ARTHROPATHY
     Dates: start: 20080101
  2. LYRICA [Concomitant]
     Indication: FIBROMYALGIA
  3. ARAVA [Concomitant]
     Indication: SJOGREN'S SYNDROME
  4. DIOVAN [Concomitant]
     Indication: HYPERTENSION

REACTIONS (5)
  - INJECTION SITE PAIN [None]
  - PULMONARY EMBOLISM [None]
  - DEVICE MALFUNCTION [None]
  - INJECTION SITE HAEMATOMA [None]
  - INJECTION SITE ERYTHEMA [None]
